FAERS Safety Report 5826671-0 (Version None)
Quarter: 2008Q3

REPORT INFORMATION
  Report Type: 
  Country: None (occurrence: None)
  Receive Date: 20080730
  Receipt Date: 20080611
  Transmission Date: 20090109
  Serious: No
  Sender: FDA-Public Use
  Company Number: US-BAYER-200812565BCC

PATIENT
  Age: 72 Year
  Sex: Female
  Weight: 68 kg

DRUGS (5)
  1. ALEVE [Suspect]
     Indication: SPINAL COLUMN STENOSIS
     Dosage: UNIT DOSE: 220 MG
     Route: 048
  2. ALEVE [Suspect]
     Dosage: UNIT DOSE: 220 MG
     Route: 048
  3. HEART MEDICATION [Concomitant]
  4. DIABETES MEDICATION [Concomitant]
  5. 5 OR 6 UNKNOWN MEDICATIONS [Concomitant]

REACTIONS (4)
  - DIABETIC NEUROPATHY [None]
  - FIBROMYALGIA [None]
  - OSTEOARTHRITIS [None]
  - SPINAL COLUMN STENOSIS [None]
